FAERS Safety Report 7728687-6 (Version None)
Quarter: 2011Q3

REPORT INFORMATION
  Report Type: 
  Country: None (occurrence: None)
  Receive Date: 20110831
  Receipt Date: 20110831
  Transmission Date: 20111222
  Serious: Yes (Hospitalization)
  Sender: FDA-Public Use
  Company Number: None

PATIENT
  Age: 62 Year
  Sex: Male
  Weight: 96.9 kg

DRUGS (1)
  1. PHENYTOIN [Suspect]
     Dosage: MG PO
     Route: 048
     Dates: start: 20061219, end: 20110619

REACTIONS (6)
  - ANTICONVULSANT DRUG LEVEL INCREASED [None]
  - HYPOTENSION [None]
  - CONFUSIONAL STATE [None]
  - TOXICITY TO VARIOUS AGENTS [None]
  - MENTAL STATUS CHANGES [None]
  - SEDATION [None]
